FAERS Safety Report 7972842-7 (Version None)
Quarter: 2011Q4

REPORT INFORMATION
  Report Type: 
  Country: None (occurrence: None)
  Receive Date: 20111213
  Receipt Date: 20111208
  Transmission Date: 20120403
  Serious: Yes (Hospitalization)
  Sender: FDA-Public Use
  Company Number: FR-ROCHE-1020645

PATIENT
  Sex: Male

DRUGS (3)
  1. CYCLOSPORINE [Suspect]
     Indication: TRANSPLANT REJECTION
     Route: 002
     Dates: start: 20100813, end: 20101231
  2. MYCOPHENOLATE MOFETIL (CELLCEPT) [Suspect]
     Indication: TRANSPLANT REJECTION
     Route: 002
     Dates: start: 20100813
  3. PREDNISONE TAB [Suspect]
     Indication: TRANSPLANT REJECTION
     Route: 002
     Dates: start: 20100813

REACTIONS (1)
  - RENAL GRAFT LOSS [None]
